FAERS Safety Report 4495687-1 (Version None)
Quarter: 2004Q4

REPORT INFORMATION
  Report Type: 
  Country: None (occurrence: None)
  Receive Date: 20041108
  Receipt Date: 20030605
  Transmission Date: 20050328
  Serious: Yes (Life-Threatening, Hospitalization, Disabling, Other)
  Sender: FDA-Public Use
  Company Number: US-MERCK-0306USA00815

PATIENT
  Age: 63 Year
  Sex: Female
  Weight: 62 kg

DRUGS (22)
  1. VIOXX [Suspect]
     Route: 048
     Dates: start: 20010401
  2. VALIUM [Concomitant]
     Route: 065
     Dates: start: 19991116
  3. SK-ERYTHROMYCIN [Concomitant]
     Indication: IMPAIRED GASTRIC EMPTYING
     Route: 065
     Dates: start: 20000717
  4. CYANOCOBALAMIN [Concomitant]
     Route: 051
  5. NITROSTAT [Concomitant]
     Route: 065
  6. SYNTHROID [Concomitant]
     Route: 065
  7. PAXIL [Concomitant]
     Route: 065
  8. LANOXIN [Concomitant]
     Route: 065
  9. SALAGEN [Concomitant]
     Route: 065
  10. CLARITIN [Concomitant]
     Route: 065
  11. ZOFRAN [Concomitant]
     Route: 065
  12. MIACALCIN [Concomitant]
     Route: 065
  13. NEURONTIN [Concomitant]
     Route: 065
  14. VITAMIN E [Concomitant]
     Route: 065
  15. PREMARIN [Concomitant]
     Route: 065
  16. ACIPHEX [Concomitant]
     Route: 065
  17. DETROL LA [Concomitant]
     Route: 065
  18. LASIX [Concomitant]
     Route: 065
  19. K-DUR 10 [Concomitant]
     Route: 065
  20. LORAZEPAM [Concomitant]
     Route: 065
  21. PRIMIDONE [Concomitant]
     Route: 065
  22. [THERAPY UNSPECIFIED] [Concomitant]
     Route: 065

REACTIONS (16)
  - ADHESION [None]
  - ADRENAL DISORDER [None]
  - ADVERSE EVENT [None]
  - AXILLARY MASS [None]
  - CSF SHUNT REMOVAL [None]
  - DISCOMFORT [None]
  - FALL [None]
  - GASTROENTERITIS [None]
  - HAEMORRHOIDS [None]
  - HELICOBACTER GASTRITIS [None]
  - IRON DEFICIENCY ANAEMIA [None]
  - NAUSEA [None]
  - POLYTRAUMATISM [None]
  - ROAD TRAFFIC ACCIDENT [None]
  - SHUNT INFECTION [None]
  - WOUND DEHISCENCE [None]
